FAERS Safety Report 25974168 (Version 1)
Quarter: 2025Q4

REPORT INFORMATION
  Report Type: Spontaneous
  Country: AU (occurrence: AU)
  Receive Date: 20251029
  Receipt Date: 20251029
  Transmission Date: 20260118
  Serious: Yes (Other)
  Sender: AMERICAN REGENT
  Company Number: AU-AMERICAN REGENT INC-2025003901

PATIENT
  Age: 30 Year
  Sex: Female

DRUGS (2)
  1. FERINJECT [Suspect]
     Active Substance: FERRIC CARBOXYMALTOSE
     Indication: Product used for unknown indication
     Dosage: 1 GRAM
     Route: 065
     Dates: start: 20250725, end: 2025
  2. SODIUM CHLORIDE [Concomitant]
     Active Substance: SODIUM CHLORIDE
     Indication: Product used for unknown indication
     Dosage: UNK
     Route: 065
     Dates: start: 20250725

REACTIONS (2)
  - Haematochezia [Unknown]
  - Anaphylactic reaction [Unknown]

NARRATIVE: CASE EVENT DATE: 20250101
